FAERS Safety Report 23079950 (Version 1)
Quarter: 2023Q4

REPORT INFORMATION
  Report Type: Spontaneous
  Country: US (occurrence: US)
  Receive Date: 20231018
  Receipt Date: 20231018
  Transmission Date: 20240110
  Serious: No
  Sender: FDA-Public Use
  Company Number: US-SA-SAC20231011000149

PATIENT
  Age: 37 Year
  Sex: Female

DRUGS (1)
  1. DUPIXENT [Suspect]
     Active Substance: DUPILUMAB
     Indication: Nasal polyps
     Dosage: 300 MG, QOW
     Route: 058
     Dates: start: 202308

REACTIONS (6)
  - Anosmia [Unknown]
  - Rhinorrhoea [Unknown]
  - Injection site inflammation [Unknown]
  - Injection site erythema [Unknown]
  - Injection site swelling [Unknown]
  - Nasal polypectomy [Unknown]

NARRATIVE: CASE EVENT DATE: 20230101
